FAERS Safety Report 13443404 (Version 1)
Quarter: 2017Q2

REPORT INFORMATION
  Report Type: Spontaneous
  Country: US (occurrence: US)
  Receive Date: 20170413
  Receipt Date: 20170413
  Transmission Date: 20170830
  Serious: No
  Sender: FDA-Public Use
  Company Number: None

PATIENT
  Age: 66 Year
  Sex: Male

DRUGS (1)
  1. HARVONI [Suspect]
     Active Substance: LEDIPASVIR\SOFOSBUVIR
     Dosage: HARVONI 90-400MG TK 1 T QD ORAL
     Route: 048
     Dates: start: 20170308

REACTIONS (1)
  - Fatigue [None]

NARRATIVE: CASE EVENT DATE: 20170413
